FAERS Safety Report 7335398-8 (Version None)
Quarter: 2011Q1

REPORT INFORMATION
  Report Type: 
  Country: None (occurrence: None)
  Receive Date: 20110307
  Receipt Date: 20110228
  Transmission Date: 20110831
  Serious: Yes (Death)
  Sender: FDA-Public Use
  Company Number: KR-GENZYME-FLUD-1000801

PATIENT
  Age: 72 Year
  Sex: Male

DRUGS (20)
  1. CYCLOPHOSPHAMIDE [Suspect]
     Route: 065
  2. DOXORUBICIN [Suspect]
     Indication: LYMPHOMA
     Route: 065
  3. VINCRISTINE [Suspect]
     Route: 065
  4. PREDNISOLONE [Suspect]
     Dosage: UNK
     Route: 065
  5. FLUDARA [Suspect]
     Dosage: UNK
     Route: 065
  6. CYCLOPHOSPHAMIDE [Suspect]
     Route: 065
  7. FLUDARA [Suspect]
     Dosage: UNK
     Route: 065
  8. CYCLOPHOSPHAMIDE [Suspect]
     Route: 065
  9. PREDNISOLONE [Suspect]
     Route: 065
  10. DOXORUBICIN [Suspect]
     Route: 065
  11. PREDNISOLONE [Suspect]
     Indication: LYMPHOMA
     Route: 065
  12. DOXORUBICIN [Suspect]
     Route: 065
  13. DOXORUBICIN [Suspect]
     Route: 065
  14. VINCRISTINE [Suspect]
     Route: 065
  15. CYCLOPHOSPHAMIDE [Suspect]
     Indication: LYMPHOMA
     Route: 065
  16. FLUDARA [Suspect]
     Indication: LYMPHOMA
     Dosage: UNK
     Route: 065
  17. FLUDARA [Suspect]
     Dosage: UNK
     Route: 065
  18. VINCRISTINE [Suspect]
     Indication: LYMPHOMA
     Route: 065
  19. VINCRISTINE [Suspect]
     Route: 065
  20. PREDNISOLONE [Suspect]
     Route: 065

REACTIONS (1)
  - DISEASE PROGRESSION [None]
